FAERS Safety Report 8107100-3 (Version None)
Quarter: 2012Q1

REPORT INFORMATION
  Report Type: 
  Country: None (occurrence: None)
  Receive Date: 20120202
  Receipt Date: 20120124
  Transmission Date: 20120608
  Serious: Yes (Hospitalization, Other)
  Sender: FDA-Public Use
  Company Number: PL-ASTRAZENECA-2011SE64273

PATIENT
  Age: 14176 Day
  Sex: Male

DRUGS (17)
  1. CALPEROS [Concomitant]
     Indication: HYPOPARATHYROIDISM
     Route: 048
  2. ALFADIOL [Concomitant]
     Route: 048
     Dates: start: 20110708
  3. RAMIPRIL [Concomitant]
     Indication: HYPERTENSION
     Route: 048
  4. LEVOTHYROXINE SODIUM [Concomitant]
     Indication: HYPOTHYROIDISM
     Route: 048
     Dates: end: 20110908
  5. HYDROCORTISONE [Concomitant]
     Indication: ADRENALECTOMY
     Route: 048
  6. ALFADIOL [Concomitant]
     Indication: HYPOPARATHYROIDISM
     Route: 048
     Dates: end: 20110707
  7. KALIPOZ [Concomitant]
     Indication: HYPOKALAEMIA
     Route: 048
  8. BONEFOS [Concomitant]
     Indication: METASTASES TO BONE
     Route: 048
  9. VANDETANIB [Suspect]
     Indication: THYROID CANCER
     Route: 048
     Dates: start: 20110726, end: 20111024
  10. CALPEROS [Concomitant]
     Route: 048
     Dates: start: 20110908
  11. LOPERAMIDE HCL [Concomitant]
     Indication: DIARRHOEA
     Route: 048
  12. SANDOSTATIN LAR [Concomitant]
     Indication: DIARRHOEA
     Route: 030
     Dates: start: 20110421
  13. LEVOTHYROXINE SODIUM [Concomitant]
     Route: 048
     Dates: start: 20110920
  14. VANDETANIB [Suspect]
     Route: 048
     Dates: start: 20111202
  15. BISOPROLOL FUMARATE [Concomitant]
     Indication: HYPERTENSION
     Route: 048
  16. KALIPOZ [Concomitant]
     Indication: DIARRHOEA
     Route: 048
  17. LEVOTHYROXINE SODIUM [Concomitant]
     Route: 048
     Dates: start: 20110909, end: 20110919

REACTIONS (1)
  - URINARY TRACT INFECTION [None]
